FAERS Safety Report 10263420 (Version 1)
Quarter: 2014Q2

REPORT INFORMATION
  Report Type: Spontaneous
  Country: US (occurrence: US)
  Receive Date: 20140626
  Receipt Date: 20140626
  Transmission Date: 20141212
  Serious: No
  Sender: FDA-Public Use
  Company Number: US-PFIZER INC-2014173658

PATIENT
  Age: 48 Year
  Sex: 0

DRUGS (3)
  1. CHANTIX [Suspect]
     Indication: SMOKING CESSATION THERAPY
     Dosage: UNK
     Dates: start: 201312
  2. CHANTIX [Suspect]
     Dosage: 2 DF, 2X/DAY
     Dates: end: 2014
  3. CHANTIX [Suspect]
     Dosage: 1 DF, 1X/DAY
     Dates: start: 2014, end: 201403

REACTIONS (3)
  - Nausea [Unknown]
  - Abnormal dreams [Unknown]
  - Weight increased [Not Recovered/Not Resolved]
